FAERS Safety Report 10957718 (Version 3)
Quarter: 2015Q3

REPORT INFORMATION
  Report Type: Spontaneous
  Country: US (occurrence: US)
  Receive Date: 20150326
  Receipt Date: 20150702
  Transmission Date: 20151125
  Serious: Yes (Hospitalization, Other)
  Sender: FDA-Public Use
  Company Number: US-PFIZER INC-2015051592

PATIENT
  Age: 55 Year
  Sex: Male

DRUGS (3)
  1. SUTENT [Suspect]
     Active Substance: SUNITINIB MALATE
     Dosage: UNK
     Dates: end: 20150226
  2. SUTENT [Suspect]
     Active Substance: SUNITINIB MALATE
     Indication: METASTATIC RENAL CELL CARCINOMA
     Dosage: 37.5 MG, DAILY
     Route: 048
     Dates: start: 20150130, end: 20150211
  3. VOTRIENT [Suspect]
     Active Substance: PAZOPANIB HYDROCHLORIDE
     Indication: RENAL CANCER
     Dosage: UNK
     Dates: start: 20131113, end: 201501

REACTIONS (15)
  - Renal failure [Not Recovered/Not Resolved]
  - Fluid retention [Unknown]
  - Metastatic renal cell carcinoma [Unknown]
  - Hypertension [Unknown]
  - Disease progression [Unknown]
  - Cardiac failure congestive [Recovered/Resolved]
  - Pulmonary oedema [Unknown]
  - Fluid overload [Recovered/Resolved]
  - Orthopnoea [Recovered/Resolved]
  - Pneumonia [Recovered/Resolved]
  - Transient ischaemic attack [Recovered/Resolved]
  - Gastrooesophageal reflux disease [Unknown]
  - Cardiac disorder [Unknown]
  - Dyspnoea [Recovered/Resolved]
  - Haemoptysis [Unknown]

NARRATIVE: CASE EVENT DATE: 20150211
